FAERS Safety Report 10349804 (Version 1)
Quarter: 2014Q3

REPORT INFORMATION
  Report Type: Spontaneous
  Country: US (occurrence: None)
  Receive Date: 20140728
  Receipt Date: 20140728
  Transmission Date: 20150326
  Serious: Yes (Disabling)
  Sender: FDA-Public Use
  Company Number: None

PATIENT
  Age: 75 Year
  Sex: Female
  Weight: 81.65 kg

DRUGS (1)
  1. LEFLUNOMIDE. [Suspect]
     Active Substance: LEFLUNOMIDE
     Indication: RHEUMATOID ARTHRITIS
     Route: 048
     Dates: start: 20140326, end: 20140701

REACTIONS (12)
  - Pruritus [None]
  - White blood cell count decreased [None]
  - Diarrhoea [None]
  - Platelet count decreased [None]
  - Nausea [None]
  - Memory impairment [None]
  - Rash erythematous [None]
  - Feeling abnormal [None]
  - Confusional state [None]
  - Blood pressure increased [None]
  - Burning sensation [None]
  - Skin exfoliation [None]

NARRATIVE: CASE EVENT DATE: 20140629
